FAERS Safety Report 15748362 (Version 1)
Quarter: 2018Q4

REPORT INFORMATION
  Report Type: Spontaneous
  Country: US (occurrence: US)
  Receive Date: 20181221
  Receipt Date: 20181221
  Transmission Date: 20190205
  Serious: No
  Sender: FDA-Public Use
  Company Number: PHHY2018US186299

PATIENT
  Sex: Male

DRUGS (1)
  1. ICAPS AREDS [Suspect]
     Active Substance: MINERALS\VITAMINS
     Indication: OCULAR HYPERAEMIA
     Dosage: UNK
     Route: 047
     Dates: end: 20181212

REACTIONS (9)
  - Balance disorder [Unknown]
  - Inflammation [Recovered/Resolved]
  - Headache [Unknown]
  - Anxiety [Recovered/Resolved]
  - Musculoskeletal discomfort [Recovered/Resolved]
  - Diarrhoea [Recovered/Resolved]
  - Musculoskeletal pain [Recovered/Resolved]
  - Insomnia [Recovered/Resolved]
  - Product quality issue [Unknown]
